FAERS Safety Report 16083595 (Version 1)
Quarter: 2019Q1

REPORT INFORMATION
  Report Type: Spontaneous
  Country: GB (occurrence: GB)
  Receive Date: 20190318
  Receipt Date: 20190318
  Transmission Date: 20190418
  Serious: Yes (Other)
  Sender: FDA-Public Use
  Company Number: GB-ACCORD-112809

PATIENT
  Age: 71 Year
  Sex: Female
  Weight: 68.94 kg

DRUGS (5)
  1. BISOPROLOL [Interacting]
     Active Substance: BISOPROLOL
     Indication: HEART RATE IRREGULAR
     Dosage: BASED ON BATCH NUMBER: NON-MAH PRODUCT
     Route: 048
     Dates: start: 20180903, end: 20180903
  2. RAMIPRIL. [Suspect]
     Active Substance: RAMIPRIL
     Indication: PRODUCT USED FOR UNKNOWN INDICATION
     Dosage: INITIALLY RECEIVED AT 2.5 MG FROM 25-JUN-2018 TO 05-JUL-2018  AND DOSE REDUCED
     Dates: start: 20180710, end: 20180912
  3. SIMVASTATIN. [Concomitant]
     Active Substance: SIMVASTATIN
  4. ACETYLSALICYLIC ACID [Concomitant]
     Active Substance: ASPIRIN
  5. BISOPROLOL [Interacting]
     Active Substance: BISOPROLOL
     Indication: HEART RATE IRREGULAR
     Dosage: ALSO RECEIVED FROM  25-JUN-2018 TO 05-JUL-2018 AT 2.5 MG TABLET ORALLY AND DOSE REDUCED LATER
     Dates: start: 20180704, end: 20180714

REACTIONS (6)
  - Lethargy [Unknown]
  - Vision blurred [Recovered/Resolved]
  - Wheezing [Unknown]
  - Visual impairment [Recovering/Resolving]
  - Drug interaction [Unknown]
  - Dizziness [Unknown]

NARRATIVE: CASE EVENT DATE: 20180903
